FAERS Safety Report 15563781 (Version 2)
Quarter: 2018Q4

REPORT INFORMATION
  Report Type: Spontaneous
  Country: US (occurrence: US)
  Receive Date: 20181029
  Receipt Date: 20181101
  Transmission Date: 20190205
  Serious: Yes (Other)
  Sender: FDA-Public Use
  Company Number: US-AMGEN INC.-USASP2018151036

PATIENT
  Sex: Female

DRUGS (2)
  1. ESTROGEN [Concomitant]
     Active Substance: ESTROGENS
     Indication: CONTRACEPTION
     Dosage: UNK
     Route: 065
  2. AIMOVIG [Suspect]
     Active Substance: ERENUMAB-AOOE
     Indication: PRODUCT USED FOR UNKNOWN INDICATION
     Dosage: UNK
     Route: 065
     Dates: start: 2018

REACTIONS (1)
  - Ischaemic stroke [Unknown]

NARRATIVE: CASE EVENT DATE: 2018
